FAERS Safety Report 9303076 (Version 3)
Quarter: 2013Q3

REPORT INFORMATION
  Report Type: Report from Study
  Country: US (occurrence: US)
  Receive Date: 20130522
  Receipt Date: 20130815
  Transmission Date: 20140515
  Serious: Yes (Death, Life-Threatening, Hospitalization, Other)
  Sender: FDA-Public Use
  Company Number: US-PFIZER INC-2013154520

PATIENT
  Age: 61 Year
  Sex: Male
  Weight: 106.1 kg

DRUGS (4)
  1. BLINDED CELECOXIB [Suspect]
     Indication: NON-SMALL CELL LUNG CANCER
     Dosage: 400 MG, 2X/DAY
     Route: 048
     Dates: start: 20130313, end: 20130430
  2. BLINDED PLACEBO [Suspect]
     Indication: NON-SMALL CELL LUNG CANCER
     Dosage: 400 MG, 2X/DAY
     Route: 048
     Dates: start: 20130313, end: 20130430
  3. CARBOPLATIN [Suspect]
     Indication: NON-SMALL CELL LUNG CANCER
     Dosage: 50% REDUCTION- 5.5 X AUC = 345 MG
     Dates: start: 20130313, end: 20130423
  4. GEMCITABINE HYDROCHLORIDE [Suspect]
     Indication: NON-SMALL CELL LUNG CANCER
     Dosage: 500 MG/M2 = 1150 MG
     Dates: start: 20130313, end: 20130423

REACTIONS (5)
  - Visceral arterial ischaemia [Fatal]
  - Platelet count decreased [Unknown]
  - Small intestinal haemorrhage [Unknown]
  - Renal failure acute [Unknown]
  - Hyponatraemia [Unknown]
